FAERS Safety Report 20992611 (Version 1)
Quarter: 2022Q2

REPORT INFORMATION
  Report Type: Spontaneous
  Country: CO (occurrence: CO)
  Receive Date: 20220622
  Receipt Date: 20220622
  Transmission Date: 20220721
  Serious: Yes (Hospitalization)
  Sender: FDA-Public Use
  Company Number: CO-SA-SAC20220620002000

PATIENT
  Sex: Male

DRUGS (1)
  1. PRALUENT [Suspect]
     Active Substance: ALIROCUMAB
     Indication: Product used for unknown indication
     Dosage: 75 MG, QM
     Route: 058

REACTIONS (7)
  - Cardiac operation [Unknown]
  - Dizziness [Unknown]
  - Cystitis [Unknown]
  - Feeling abnormal [Unknown]
  - Low density lipoprotein increased [Unknown]
  - Bladder disorder [Unknown]
  - Product use issue [Unknown]

NARRATIVE: CASE EVENT DATE: 20191010
